FAERS Safety Report 10009908 (Version 1)
Quarter: 2014Q1

REPORT INFORMATION
  Report Type: Spontaneous
  Country: US (occurrence: US)
  Receive Date: 20140312
  Receipt Date: 20140312
  Transmission Date: 20141002
  Serious: No
  Sender: FDA-Public Use
  Company Number: US-INCYTE CORPORATION-2013IN000394

PATIENT
  Age: 77 Year
  Sex: Female

DRUGS (8)
  1. JAKAFI [Suspect]
     Indication: MYELOFIBROSIS
     Dosage: 10 MG, BID
  2. FOSAMAX [Concomitant]
  3. CLINDAMYCIN [Concomitant]
  4. AMLODIPINE [Concomitant]
  5. ATENOLOL [Concomitant]
  6. MULTIVITAMINS [Concomitant]
  7. LEVOTHYROXINE [Concomitant]
  8. PRADAXA [Concomitant]

REACTIONS (2)
  - Cellulitis [Unknown]
  - Frequent bowel movements [Unknown]
